FAERS Safety Report 12859355 (Version 1)
Quarter: 2016Q4

REPORT INFORMATION
  Report Type: Report from Study
  Country: LB (occurrence: LB)
  Receive Date: 20161018
  Receipt Date: 20161018
  Transmission Date: 20170207
  Serious: Yes (Death, Hospitalization, Other)
  Sender: FDA-Public Use
  Company Number: LB-B.I. PHARMACEUTICALS,INC./RIDGEFIELD-2016-BI-16717AE

PATIENT
  Age: 56 Year
  Sex: Female
  Weight: 59 kg

DRUGS (1)
  1. BIBF 1120 [Suspect]
     Active Substance: NINTEDANIB
     Indication: IDIOPATHIC PULMONARY FIBROSIS
     Route: 048
     Dates: start: 20160115, end: 20160327

REACTIONS (8)
  - Bradycardia [Fatal]
  - Respiratory distress [Recovered/Resolved]
  - Cardiac arrest [Fatal]
  - Hyperkalaemia [Fatal]
  - Haemorrhage [Fatal]
  - Gastrointestinal haemorrhage [Recovered/Resolved]
  - Acidosis [Fatal]
  - Acute kidney injury [Fatal]

NARRATIVE: CASE EVENT DATE: 20160226
